FAERS Safety Report 9739180 (Version 3)
Quarter: 2014Q1

REPORT INFORMATION
  Report Type: Spontaneous
  Country: US (occurrence: US)
  Receive Date: 20131209
  Receipt Date: 20140206
  Transmission Date: 20141002
  Serious: Yes (Other)
  Sender: FDA-Public Use
  Company Number: US-009507513-1312USA002452

PATIENT
  Age: 75 Year
  Sex: Male
  Weight: 96.15 kg

DRUGS (5)
  1. JANUMET [Suspect]
     Indication: TYPE 2 DIABETES MELLITUS
     Dosage: 50/1000 TWICE A DAY
     Route: 048
     Dates: start: 20121204, end: 20140103
  2. AMARYL [Concomitant]
  3. ZOCOR [Concomitant]
  4. PRINIVIL [Concomitant]
  5. COREG [Concomitant]
     Dosage: 6.25, BID

REACTIONS (1)
  - Pancreatic carcinoma [Not Recovered/Not Resolved]
